FAERS Safety Report 6436725-6 (Version None)
Quarter: 2009Q4

REPORT INFORMATION
  Report Type: 
  Country: None (occurrence: None)
  Receive Date: 20091110
  Receipt Date: 20080424
  Transmission Date: 20100525
  Serious: No
  Sender: FDA-Public Use
  Company Number: AEUSA200800105

PATIENT
  Age: 78 Year
  Sex: Male

DRUGS (1)
  1. GAMUNEX [Suspect]
     Indication: NEUROPATHY PERIPHERAL
     Dosage: IV
     Route: 042
     Dates: start: 20080424, end: 20080424

REACTIONS (2)
  - INFUSION SITE EXTRAVASATION [None]
  - OEDEMA PERIPHERAL [None]
